FAERS Safety Report 25716752 (Version 2)
Quarter: 2025Q4

REPORT INFORMATION
  Report Type: Spontaneous
  Country: US (occurrence: US)
  Receive Date: 20250822
  Receipt Date: 20251120
  Transmission Date: 20260117
  Serious: Yes (Other)
  Sender: BRISTOL-MYERS SQUIBB COMPANY
  Company Number: US-BRISTOL-MYERS SQUIBB COMPANY-2025-116791

PATIENT
  Sex: Male

DRUGS (4)
  1. NULOJIX [Suspect]
     Active Substance: BELATACEPT
     Indication: Lung transplant
     Dosage: 5 MG/KG MONTHLY
     Route: 042
     Dates: start: 202310
  2. TACROLIMUS [Concomitant]
     Active Substance: TACROLIMUS
     Indication: Product used for unknown indication
  3. MYCOPHENOLIC ACID [Concomitant]
     Active Substance: MYCOPHENOLIC ACID
     Indication: Product used for unknown indication
  4. PREDNISONE [Concomitant]
     Active Substance: PREDNISONE
     Indication: Product used for unknown indication

REACTIONS (2)
  - Colon cancer [Unknown]
  - Off label use [Unknown]

NARRATIVE: CASE EVENT DATE: 20250817
